FAERS Safety Report 14754299 (Version 1)
Quarter: 2018Q2

REPORT INFORMATION
  Report Type: Spontaneous
  Country: GB (occurrence: GB)
  Receive Date: 20180412
  Receipt Date: 20180412
  Transmission Date: 20180711
  Serious: Yes (Other)
  Sender: FDA-Public Use
  Company Number: GB-BRISTOL-MYERS SQUIBB COMPANY-BMS-2018-033875

PATIENT
  Sex: Female

DRUGS (2)
  1. GLUCOSAMINE [Interacting]
     Active Substance: GLUCOSAMINE
     Indication: PRODUCT USED FOR UNKNOWN INDICATION
     Route: 065
  2. APIXABAN [Suspect]
     Active Substance: APIXABAN
     Indication: DEEP VEIN THROMBOSIS
     Dosage: 20 MG, DAILY
     Route: 048

REACTIONS (3)
  - Food interaction [Unknown]
  - Drug interaction [Unknown]
  - Hypertension [Recovering/Resolving]
